FAERS Safety Report 19370350 (Version 1)
Quarter: 2021Q2

REPORT INFORMATION
  Report Type: Spontaneous
  Country: FR (occurrence: FR)
  Receive Date: 20210603
  Receipt Date: 20210603
  Transmission Date: 20210717
  Serious: Yes (Hospitalization, Other)
  Sender: FDA-Public Use
  Company Number: FR-LUPIN PHARMACEUTICALS INC.-2021-08467

PATIENT
  Sex: Female
  Weight: 2.83 kg

DRUGS (8)
  1. PROPYLTHIOURACIL. [Suspect]
     Active Substance: PROPYLTHIOURACIL
     Dosage: 300 MILLIGRAM, QD
     Route: 064
  2. LEVOTHYROXINE. [Suspect]
     Active Substance: LEVOTHYROXINE
     Indication: HYPOTHYROIDISM
     Dosage: 150 MICROGRAM, QD
     Route: 064
  3. LEVOTHYROXINE. [Suspect]
     Active Substance: LEVOTHYROXINE
     Dosage: 100 MICROGRAM, QD
     Route: 064
  4. CARBIMAZOLE [Suspect]
     Active Substance: CARBIMAZOLE
     Dosage: 60 MILLIGRAM, QD (RESUMED)
     Route: 064
  5. PROPYLTHIOURACIL. [Suspect]
     Active Substance: PROPYLTHIOURACIL
     Indication: BASEDOW^S DISEASE
     Dosage: 200 MILLIGRAM, QD
     Route: 064
  6. CARBIMAZOLE [Suspect]
     Active Substance: CARBIMAZOLE
     Indication: BASEDOW^S DISEASE
     Dosage: 40 MILLIGRAM, QD
     Route: 064
  7. CARBIMAZOLE [Suspect]
     Active Substance: CARBIMAZOLE
     Dosage: 20 MILLIGRAM, QD
     Route: 064
  8. CARBIMAZOLE [Suspect]
     Active Substance: CARBIMAZOLE
     Dosage: 60 MILLIGRAM, QD (STOPPED)
     Route: 064

REACTIONS (3)
  - Hypothyroidism [Recovered/Resolved]
  - Foetal exposure during pregnancy [Unknown]
  - Transient hypothyroxinaemia of prematurity [Recovered/Resolved]
